FAERS Safety Report 12732136 (Version 1)
Quarter: 2016Q3

REPORT INFORMATION
  Report Type: Spontaneous
  Country: US (occurrence: US)
  Receive Date: 20160909
  Receipt Date: 20160909
  Transmission Date: 20161109
  Serious: No
  Sender: FDA-Public Use
  Company Number: None

PATIENT
  Age: 54 Year
  Sex: Female
  Weight: 71.4 kg

DRUGS (2)
  1. NEULASTA [Suspect]
     Active Substance: PEGFILGRASTIM
     Indication: PROPHYLAXIS
     Dosage: OTHER STRENGTH:6 MG;OTHER DOSE:6 MG;OTHER FREQUENCY:OTHER;OTHER ROUTE: SUBCUTANEOUS
     Route: 058
     Dates: start: 20160906
  2. NEULASTA [Suspect]
     Active Substance: PEGFILGRASTIM
     Indication: FEBRILE NEUTROPENIA
     Dosage: OTHER STRENGTH:6 MG;OTHER DOSE:6 MG;OTHER FREQUENCY:OTHER;OTHER ROUTE: SUBCUTANEOUS
     Route: 058
     Dates: start: 20160906

REACTIONS (2)
  - Device leakage [None]
  - Incorrect dose administered by device [None]

NARRATIVE: CASE EVENT DATE: 20160908
